FAERS Safety Report 9016482 (Version 1)
Quarter: 2013Q1

REPORT INFORMATION
  Report Type: Report from Study
  Country: GB (occurrence: GB)
  Receive Date: 20130116
  Receipt Date: 20130116
  Transmission Date: 20140127
  Serious: Yes (Hospitalization)
  Sender: FDA-Public Use
  Company Number: GB-JNJFOC-20130106080

PATIENT
  Age: 62 Year
  Sex: Male
  Weight: 92 kg

DRUGS (4)
  1. REMICADE [Suspect]
     Indication: RHEUMATIC DISORDER
     Route: 042
     Dates: start: 20040426
  2. METHOTREXATE [Concomitant]
     Indication: RHEUMATOID ARTHRITIS
  3. STEROIDS NOS [Concomitant]
     Indication: RHEUMATOID ARTHRITIS
  4. FLEXINOL [Concomitant]
     Indication: RHEUMATOID ARTHRITIS

REACTIONS (2)
  - Asthma [Unknown]
  - Infection [Unknown]
